FAERS Safety Report 9186858 (Version 1)
Quarter: 2013Q1

REPORT INFORMATION
  Report Type: Spontaneous
  Country: US (occurrence: US)
  Receive Date: 20130325
  Receipt Date: 20130325
  Transmission Date: 20140127
  Serious: Yes (Hospitalization)
  Sender: FDA-Public Use
  Company Number: US-GLAXOSMITHKLINE-A0833491A

PATIENT
  Sex: Male

DRUGS (1)
  1. AVANDIA [Suspect]
     Indication: DIABETES MELLITUS
     Dosage: 8MG PER DAY
     Route: 048

REACTIONS (10)
  - Cardiac failure congestive [Not Recovered/Not Resolved]
  - Ischaemic cardiomyopathy [Unknown]
  - Sick sinus syndrome [Unknown]
  - Angina pectoris [Unknown]
  - Cardiovascular disorder [Unknown]
  - Heart rate irregular [Unknown]
  - Arrhythmia [Unknown]
  - Coronary artery disease [Unknown]
  - Syncope [Unknown]
  - Atrial fibrillation [Unknown]
